FAERS Safety Report 8581902-1 (Version None)
Quarter: 2012Q3

REPORT INFORMATION
  Report Type: 
  Country: None (occurrence: None)
  Receive Date: 20120809
  Receipt Date: 20120731
  Transmission Date: 20120928
  Serious: Yes (Hospitalization)
  Sender: FDA-Public Use
  Company Number: ZA-ELI_LILLY_AND_COMPANY-ZA201208002263

PATIENT
  Sex: Female

DRUGS (8)
  1. APIDRA [Concomitant]
     Indication: DIABETES MELLITUS
     Dosage: 18 U, EACH MORNING
     Route: 058
  2. APIDRA [Concomitant]
     Dosage: 12 U, QD
     Route: 058
  3. GLUCOPHAGE [Concomitant]
     Indication: DIABETES MELLITUS
     Dosage: 1 DF, QD
     Route: 048
  4. ZOFER [Concomitant]
     Indication: NAUSEA
     Dosage: UNK, PRN
     Route: 048
  5. CHEMOTHERAPEUTICS [Concomitant]
     Indication: NEOPLASM MALIGNANT
     Dosage: UNK
     Route: 048
  6. TRAMADOL HYDROCHLORIDE/ACETAMINOPHEN [Concomitant]
     Indication: PAIN
     Dosage: 2 DF, QD
     Route: 048
  7. HUMULIN N [Suspect]
     Indication: DIABETES MELLITUS
     Dosage: 12 U, PRN
     Route: 058
     Dates: start: 20110901
  8. APIDRA [Concomitant]
     Dosage: 18 U, EACH EVENING
     Route: 058

REACTIONS (1)
  - HOSPITALISATION [None]
